FAERS Safety Report 8644083 (Version 3)
Quarter: 2012Q4

REPORT INFORMATION
  Report Type: 
  Country: US (occurrence: US)
  Receive Date: 20120629
  Receipt Date: 20121212
  Transmission Date: 20130627
  Serious: Yes (Death)
  Sender: FDA-Public Use
  Company Number: US-DX529-2012DX000140

PATIENT
  Age: 46 Year
  Sex: Female

DRUGS (5)
  1. KALBITOR [Suspect]
     Indication: HEREDITARY ANGIOEDEMA
     Route: 058
     Dates: start: 20120530, end: 20120530
  2. KALBITOR [Suspect]
     Indication: HEREDITARY ANGIOEDEMA
     Route: 058
     Dates: start: 20120609, end: 20120610
  3. LISINOPRIL [Suspect]
     Indication: PRODUCT USED FOR UNKNOWN INDICATION
  4. CLONAZEPAM [Concomitant]
     Indication: PRODUCT USED FOR UNKNOWN INDICATION
  5. CINRYZE [Concomitant]
     Indication: HEREDITARY ANGIOEDEMA

REACTIONS (4)
  - Accidental overdose [Fatal]
  - Cardiac disorder [Fatal]
  - Hypotension [Fatal]
  - Hypoxia [Fatal]
